FAERS Safety Report 5317503-8 (Version None)
Quarter: 2007Q2

REPORT INFORMATION
  Report Type: 
  Country: None (occurrence: None)
  Receive Date: 20070507
  Receipt Date: 20070427
  Transmission Date: 20071010
  Serious: Yes (Other)
  Sender: FDA-Public Use
  Company Number: PHEH2007US04111

PATIENT
  Age: 69 Year
  Sex: Female

DRUGS (8)
  1. ZELNORM [Suspect]
     Indication: IRRITABLE BOWEL SYNDROME
     Dosage: 6 MG, BID
     Route: 048
     Dates: start: 20070306, end: 20070403
  2. PLAQUENIL [Concomitant]
     Indication: ARTHRITIS
     Route: 048
  3. PREMARIN [Concomitant]
     Indication: MENOPAUSE
     Route: 048
  4. LEVOXYL [Concomitant]
     Indication: HYPOTHYROIDISM
     Dosage: 100 UG, QD
     Route: 048
  5. OLMESARTAN MEDOXOMIL [Concomitant]
     Indication: HYPERTENSION
     Dosage: 40 MG, UNK
     Route: 048
  6. FUROSEMIDE [Concomitant]
     Indication: HYPERTENSION
     Dosage: 40 MG, UNK
     Route: 048
  7. CALCIUM CHLORIDE [Concomitant]
     Route: 048
  8. VITAMIN D [Concomitant]

REACTIONS (13)
  - ALOPECIA [None]
  - BOWEL MOVEMENT IRREGULARITY [None]
  - CHILLS [None]
  - DIZZINESS [None]
  - DYSPEPSIA [None]
  - FALL [None]
  - FLATULENCE [None]
  - HAEMATOCHEZIA [None]
  - HOT FLUSH [None]
  - HYPOTRICHOSIS [None]
  - JOINT INJURY [None]
  - TREMOR [None]
  - URINARY TRACT INFECTION [None]
